FAERS Safety Report 16669286 (Version 1)
Quarter: 2019Q3

REPORT INFORMATION
  Report Type: Spontaneous
  Country: US (occurrence: US)
  Receive Date: 20190619
  Receipt Date: 20190619
  Transmission Date: 20191004
  Serious: Yes (Life-Threatening, Hospitalization, Disabling)
  Sender: FDA-Public Use
  Company Number: None

PATIENT
  Age: 53 Year
  Sex: Female
  Weight: 97.07 kg

DRUGS (5)
  1. LISINOPRIL /HYDROCHLOROTHIAZIDE [Suspect]
     Active Substance: HYDROCHLOROTHIAZIDE\LISINOPRIL
     Indication: KNEE ARTHROPLASTY
  2. LISINOPRIL /HYDROCHLOROTHIAZIDE [Suspect]
     Active Substance: HYDROCHLOROTHIAZIDE\LISINOPRIL
     Indication: HYPERTENSION
     Dosage: ?          QUANTITY:1 DF DOSAGE FORM;?
     Route: 048
     Dates: start: 20100909, end: 20190325
  3. FAMOTIDINE. [Concomitant]
     Active Substance: FAMOTIDINE
  4. MELOXICAM. [Concomitant]
     Active Substance: MELOXICAM
  5. LISINOPRIL /HYDROCHLOROTHIAZIDE [Suspect]
     Active Substance: HYDROCHLOROTHIAZIDE\LISINOPRIL
     Indication: GASTROOESOPHAGEAL REFLUX DISEASE

REACTIONS (6)
  - Vomiting [None]
  - Gastrooesophageal reflux disease [None]
  - Flank pain [None]
  - Asthenia [None]
  - Kidney infection [None]
  - Loss of consciousness [None]

NARRATIVE: CASE EVENT DATE: 20190326
